FAERS Safety Report 6006611-4 (Version None)
Quarter: 2008Q4

REPORT INFORMATION
  Report Type: 
  Country: None (occurrence: None)
  Receive Date: 20081217
  Receipt Date: 20080102
  Transmission Date: 20090506
  Serious: No
  Sender: FDA-Public Use
  Company Number: US-AMGEN-KDL258807

PATIENT
  Sex: Female

DRUGS (1)
  1. ENBREL [Suspect]
     Indication: PSORIATIC ARTHROPATHY
     Route: 058
     Dates: start: 20071019

REACTIONS (11)
  - ABDOMINAL PAIN UPPER [None]
  - ANXIETY [None]
  - DIARRHOEA [None]
  - ERYTHEMA [None]
  - FIBROMYALGIA [None]
  - HEADACHE [None]
  - INJECTION SITE PAIN [None]
  - PSORIASIS [None]
  - SKIN ATROPHY [None]
  - VOMITING [None]
  - WEIGHT LOSS POOR [None]
